FAERS Safety Report 6957890-8 (Version None)
Quarter: 2010Q3

REPORT INFORMATION
  Report Type: 
  Country: None (occurrence: None)
  Receive Date: 20100827
  Receipt Date: 20100827
  Transmission Date: 20110219
  Serious: No
  Sender: FDA-Public Use
  Company Number: None

PATIENT
  Weight: 57.3 kg

DRUGS (3)
  1. EFFEXOR XR [Suspect]
     Indication: ANXIETY
     Dosage: EFFEXOR XR 150MG 1XDAY CAPSUL
     Dates: start: 20020101, end: 20100101
  2. EFFEXOR XR [Suspect]
     Indication: PANIC DISORDER
     Dosage: EFFEXOR XR 150MG 1XDAY CAPSUL
     Dates: start: 20020101, end: 20100101
  3. ESTROSTEP FE [Suspect]
     Indication: OVARIAN CYST
     Dosage: ESTROP STEP FE 28 1XDAY TABLET
     Dates: start: 20020101, end: 20100101

REACTIONS (4)
  - DRUG DOSE OMISSION [None]
  - PARAESTHESIA [None]
  - THROMBOSIS [None]
  - WITHDRAWAL SYNDROME [None]
